FAERS Safety Report 19911849 (Version 1)
Quarter: 2021Q4

REPORT INFORMATION
  Report Type: Other
  Country: IT (occurrence: IT)
  Receive Date: 20211004
  Receipt Date: 20211004
  Transmission Date: 20220303
  Serious: Yes (Hospitalization)
  Sender: FDA-Public Use
  Company Number: IT-MACLEODS PHARMA UK LTD-MAC2021032833

PATIENT

DRUGS (3)
  1. PANTOPRAZOLE [Suspect]
     Active Substance: PANTOPRAZOLE
     Indication: Product used for unknown indication
     Dosage: 56 DOSAGE FORM, SINGLE
     Route: 065
     Dates: start: 20210720, end: 20210720
  2. OLMESARTAN MEDOXOMIL [Suspect]
     Active Substance: OLMESARTAN MEDOXOMIL
     Indication: Product used for unknown indication
     Dosage: 28 DOSAGE FORM, SINGLE
     Route: 065
     Dates: start: 20210720, end: 20210720
  3. TEGRETOL [Suspect]
     Active Substance: CARBAMAZEPINE
     Indication: Product used for unknown indication
     Dosage: 20 DOSAGE FORM, SINGLE
     Route: 065
     Dates: start: 20210720, end: 20210720

REACTIONS (3)
  - Hypotension [Unknown]
  - Drug abuse [Unknown]
  - Overdose [Unknown]

NARRATIVE: CASE EVENT DATE: 20210720
